FAERS Safety Report 14404241 (Version 4)
Quarter: 2019Q3

REPORT INFORMATION
  Report Type: Spontaneous
  Country: US (occurrence: US)
  Receive Date: 20180117
  Receipt Date: 20190705
  Transmission Date: 20191004
  Serious: Yes (Hospitalization, Other)
  Sender: FDA-Public Use
  Company Number: US-DSJP-DSU-2017-138931

PATIENT

DRUGS (2)
  1. BENICAR [Suspect]
     Active Substance: OLMESARTAN MEDOXOMIL
     Indication: ESSENTIAL HYPERTENSION
     Dosage: 5 MG, QD
     Route: 048
     Dates: start: 20050101
  2. BENICAR [Suspect]
     Active Substance: OLMESARTAN MEDOXOMIL
     Dosage: 20 MG, QD
     Route: 048
     Dates: start: 20050101

REACTIONS (9)
  - Sprue-like enteropathy [Recovering/Resolving]
  - Irritable bowel syndrome [Not Recovered/Not Resolved]
  - Erosive duodenitis [Unknown]
  - Acute kidney injury [Not Recovered/Not Resolved]
  - Cholecystitis [Recovered/Resolved]
  - Helicobacter test positive [Unknown]
  - Colon adenoma [Not Recovered/Not Resolved]
  - Haemorrhoids [Unknown]
  - Alanine aminotransferase increased [Unknown]

NARRATIVE: CASE EVENT DATE: 20060825
